FAERS Safety Report 17896373 (Version 1)
Quarter: 2020Q2

REPORT INFORMATION
  Report Type: Spontaneous
  Country: US (occurrence: US)
  Receive Date: 20200615
  Receipt Date: 20200615
  Transmission Date: 20200714
  Serious: Yes (Death)
  Sender: FDA-Public Use
  Company Number: None

PATIENT
  Age: 61 Year
  Sex: Female
  Weight: 56.7 kg

DRUGS (4)
  1. MORPHINE [Concomitant]
     Active Substance: MORPHINE
  2. MEKINIST [Suspect]
     Active Substance: TRAMETINIB DIMETHYL SULFOXIDE
     Indication: HEPATIC NEOPLASM
     Route: 048
     Dates: start: 20200415, end: 20200615
  3. XANAX [Concomitant]
     Active Substance: ALPRAZOLAM
  4. TAFINLAR [Suspect]
     Active Substance: DABRAFENIB MESYLATE
     Indication: HEPATIC NEOPLASM
     Route: 048
     Dates: start: 20200415, end: 20200615

REACTIONS (1)
  - Death [None]

NARRATIVE: CASE EVENT DATE: 20200615
